FAERS Safety Report 13276603 (Version 1)
Quarter: 2017Q1

REPORT INFORMATION
  Report Type: Spontaneous
  Country: US (occurrence: US)
  Receive Date: 20170228
  Receipt Date: 20170228
  Transmission Date: 20170428
  Serious: No
  Sender: FDA-Public Use
  Company Number: US-TAKEDA-2017TUS004186

PATIENT
  Age: 21 Day
  Sex: Female
  Weight: 4.99 kg

DRUGS (3)
  1. PREVACID [Suspect]
     Active Substance: LANSOPRAZOLE
     Dosage: 1 ML, BID
     Route: 048
     Dates: start: 20170219
  2. ZANTAC [Concomitant]
     Active Substance: RANITIDINE HYDROCHLORIDE
     Indication: GASTROOESOPHAGEAL REFLUX DISEASE
     Dosage: UNK
     Dates: start: 20170124, end: 20170218
  3. PREVACID [Suspect]
     Active Substance: LANSOPRAZOLE
     Indication: GASTROOESOPHAGEAL REFLUX DISEASE
     Dosage: 1 ML, BID
     Route: 048
     Dates: start: 20170110, end: 20170124

REACTIONS (2)
  - Drug administered to patient of inappropriate age [Unknown]
  - Insomnia [Unknown]

NARRATIVE: CASE EVENT DATE: 20170110
